FAERS Safety Report 18666146 (Version 1)
Quarter: 2020Q4

REPORT INFORMATION
  Report Type: Spontaneous
  Country: FR (occurrence: FR)
  Receive Date: 20201226
  Receipt Date: 20201226
  Transmission Date: 20210114
  Serious: Yes (Hospitalization)
  Sender: FDA-Public Use
  Company Number: FR-TEVA-2020-FR-1861830

PATIENT
  Age: 65 Year
  Sex: Male
  Weight: 70 kg

DRUGS (8)
  1. DOLIPRANE [Suspect]
     Active Substance: ACETAMINOPHEN
     Indication: PYREXIA
     Dosage: UNSPECIFIED
     Route: 048
     Dates: start: 202007, end: 202008
  2. YERVOY 5 MG/ML, SOLUTION A DILUER POUR PERFUSION [Concomitant]
     Dosage: UNSPECIFIED
     Route: 042
     Dates: start: 20200615
  3. METOCLOPRAMIDE. [Concomitant]
     Active Substance: METOCLOPRAMIDE
     Dosage: 10MG
     Route: 042
  4. OPDIVO [Suspect]
     Active Substance: NIVOLUMAB
     Indication: NEOPLASM MALIGNANT
     Dosage: 240MG
     Route: 042
     Dates: start: 20200615, end: 20200706
  5. KETOPROFENE [Suspect]
     Active Substance: KETOPROFEN
     Indication: PYREXIA
     Dosage: UNSPECIFIED
     Route: 048
     Dates: start: 202007, end: 202008
  6. ELIQUIS [Concomitant]
     Active Substance: APIXABAN
     Dosage: 2 DOSAGE FORMS
     Route: 048
     Dates: start: 20200711, end: 20200715
  7. INNOHEP [Concomitant]
     Active Substance: TINZAPARIN SODIUM
     Dosage: 18000 IU
     Route: 058
     Dates: start: 20200711, end: 20200715
  8. KEPPRA [Concomitant]
     Active Substance: LEVETIRACETAM
     Dosage: 2 DOSAGE FORMS
     Route: 048
     Dates: start: 20200611, end: 20200615

REACTIONS (1)
  - Cholestasis [Recovering/Resolving]

NARRATIVE: CASE EVENT DATE: 20200701
